FAERS Safety Report 7080052-3 (Version None)
Quarter: 2010Q4

REPORT INFORMATION
  Report Type: 
  Country: None (occurrence: None)
  Receive Date: 20101102
  Receipt Date: 20101001
  Transmission Date: 20110411
  Serious: No
  Sender: FDA-Public Use
  Company Number: US-ABBOTT-10P-163-0675216-00

PATIENT
  Sex: Female

DRUGS (5)
  1. BIAXIN [Suspect]
     Indication: PRODUCT USED FOR UNKNOWN INDICATION
  2. DAPSON [Concomitant]
     Indication: PRODUCT USED FOR UNKNOWN INDICATION
  3. METANX [Concomitant]
     Indication: PRODUCT USED FOR UNKNOWN INDICATION
  4. GENERIC ZYRTEC [Concomitant]
     Indication: PRODUCT USED FOR UNKNOWN INDICATION
  5. HUMIRA [Concomitant]
     Indication: PSORIASIS
     Route: 058
     Dates: start: 20100601

REACTIONS (1)
  - RASH [None]
